FAERS Safety Report 8212076 (Version 4)
Quarter: 2019Q2

REPORT INFORMATION
  Report Type: Report from Study
  Country: US (occurrence: US)
  Receive Date: 20111029
  Receipt Date: 20190621
  Transmission Date: 20190711
  Serious: Yes (Other)
  Sender: FDA-Public Use
  Company Number: US-AMGEN-USASP2011011810

PATIENT
  Age: 39 Year
  Sex: Male
  Weight: 103.4 kg

DRUGS (10)
  1. HYDROCODONE [Concomitant]
     Active Substance: HYDROCODONE
  2. SIMVASTATIN. [Concomitant]
     Active Substance: SIMVASTATIN
     Dosage: UNK
  3. ENBREL [Suspect]
     Active Substance: ETANERCEPT
     Indication: RHEUMATOID ARTHRITIS
     Dosage: 25 MILLIGRAM, Q2WK
     Route: 065
     Dates: start: 200304
  4. ENBREL [Suspect]
     Active Substance: ETANERCEPT
     Indication: PSORIATIC ARTHROPATHY
     Dosage: 50 MILLIGRAM, QWK
     Route: 065
  5. CYCLOSPORINE. [Concomitant]
     Active Substance: CYCLOSPORINE
     Dosage: UNK
     Dates: end: 201005
  6. ENBREL [Suspect]
     Active Substance: ETANERCEPT
     Indication: PSORIASIS
     Dosage: 50 MILLIGRAM, QWK
     Route: 065
  7. TRICOR [Concomitant]
     Active Substance: FENOFIBRATE
  8. XELJANZ XR [Concomitant]
     Active Substance: TOFACITINIB CITRATE
     Dosage: 11 MILLIGRAM
  9. GLYBURIDE. [Concomitant]
     Active Substance: GLYBURIDE
     Dosage: UNK
  10. TREXALL [Concomitant]
     Active Substance: METHOTREXATE SODIUM
     Indication: RHEUMATOID ARTHRITIS

REACTIONS (16)
  - Cutaneous T-cell lymphoma [Unknown]
  - Salivary hypersecretion [Unknown]
  - Nocturia [Unknown]
  - Arthritis [Unknown]
  - Insomnia [Unknown]
  - Herpes virus infection [Unknown]
  - Neoplasm malignant [Unknown]
  - Muscle spasms [Unknown]
  - Alopecia [Unknown]
  - Therapeutic product effect incomplete [Unknown]
  - Dyspepsia [Unknown]
  - Psoriasis [Unknown]
  - Abdominal discomfort [Unknown]
  - Photosensitivity reaction [Unknown]
  - Asthenia [Unknown]
  - Blood pressure increased [Unknown]

NARRATIVE: CASE EVENT DATE: 2004
